FAERS Safety Report 9708340 (Version 1)
Quarter: 2013Q4

REPORT INFORMATION
  Report Type: Spontaneous
  Country: DK (occurrence: DK)
  Receive Date: 20131125
  Receipt Date: 20131125
  Transmission Date: 20140711
  Serious: Yes (Life-Threatening, Hospitalization)
  Sender: FDA-Public Use
  Company Number: DK-TEVA-444110ISR

PATIENT
  Age: 56 Year
  Sex: Female
  Weight: 64 kg

DRUGS (10)
  1. EMTHEXATE [Suspect]
     Indication: RHEUMATOID ARTHRITIS
     Dosage: STRENGTH: 2.5 MG
     Route: 048
     Dates: end: 20131018
  2. PREDNISOLON [Concomitant]
     Indication: RHEUMATOID ARTHRITIS
  3. ALENDRONAT ^ARROW^ [Concomitant]
     Indication: OSTEOPOROSIS
     Dates: start: 20121013
  4. TRADOLAN [Concomitant]
     Indication: ANALGESIC THERAPY
  5. FOLIMET [Concomitant]
     Indication: FOLATE DEFICIENCY
  6. CORODIL [Concomitant]
     Indication: BLOOD PRESSURE
  7. HJERTEMAGNYL [Concomitant]
     Indication: ANTICOAGULANT THERAPY
  8. KURACID [Concomitant]
     Indication: ANTACID THERAPY
  9. COMBAR [Concomitant]
     Indication: DEPRESSION
  10. PAMOL [Concomitant]
     Indication: ANALGESIC THERAPY

REACTIONS (2)
  - Agranulocytosis [Recovering/Resolving]
  - Sepsis [Recovering/Resolving]
